FAERS Safety Report 4273657-6 (Version None)
Quarter: 2004Q1

REPORT INFORMATION
  Report Type: 
  Country: None (occurrence: None)
  Receive Date: 20040116
  Receipt Date: 20040116
  Transmission Date: 20041129
  Serious: No
  Sender: FDA-Public Use
  Company Number: None

PATIENT
  Age: 56 Year
  Sex: Male
  Weight: 57 kg

DRUGS (1)
  1. AMIODARONE HCL [Suspect]
     Indication: ARRHYTHMIA
     Dosage: 65MG/HR INTRAVENOU
     Route: 042
     Dates: start: 20031230, end: 20040101

REACTIONS (1)
  - ASPARTATE AMINOTRANSFERASE INCREASED [None]
